FAERS Safety Report 6663358-9 (Version None)
Quarter: 2010Q2

REPORT INFORMATION
  Report Type: 
  Country: None (occurrence: None)
  Receive Date: 20100401
  Receipt Date: 20100329
  Transmission Date: 20101027
  Serious: Yes (Death, Other)
  Sender: FDA-Public Use
  Company Number: SI-CELGENEUS-261-21880-10021702

PATIENT
  Sex: Male
  Weight: 60 kg

DRUGS (9)
  1. REVLIMID [Suspect]
     Route: 048
     Dates: start: 20091028
  2. REVLIMID [Suspect]
     Route: 048
  3. REVLIMID [Suspect]
     Route: 048
     Dates: start: 20091229, end: 20100105
  4. ASPIRIN [Concomitant]
     Indication: DRUG USE FOR UNKNOWN INDICATION
     Route: 065
  5. NOLPAZA [Concomitant]
     Indication: DRUG USE FOR UNKNOWN INDICATION
     Route: 065
  6. ALLOPURINOL [Concomitant]
     Indication: DRUG USE FOR UNKNOWN INDICATION
     Route: 065
  7. FUROSEMIDE [Concomitant]
     Indication: DRUG USE FOR UNKNOWN INDICATION
     Route: 065
  8. VALTREX [Interacting]
     Indication: DRUG USE FOR UNKNOWN INDICATION
     Route: 065
  9. EPREX [Concomitant]
     Indication: DRUG USE FOR UNKNOWN INDICATION
     Route: 065

REACTIONS (3)
  - FALL [None]
  - PLEURAL EFFUSION [None]
  - SUBDURAL HAEMATOMA [None]
